FAERS Safety Report 4601440-8 (Version None)
Quarter: 2005Q1

REPORT INFORMATION
  Report Type: 
  Country: None (occurrence: None)
  Receive Date: 20050308
  Receipt Date: 20050228
  Transmission Date: 20050727
  Serious: Yes (Hospitalization)
  Sender: FDA-Public Use
  Company Number: PHFR2005GB01058

PATIENT
  Age: 67 Year
  Sex: Male

DRUGS (7)
  1. CYCLOSPORINE [Suspect]
     Indication: MYELODYSPLASTIC SYNDROME
     Dosage: 175 MG, BID
     Route: 048
     Dates: start: 20050110, end: 20050127
  2. SIMVASTATIN [Suspect]
     Indication: BLOOD CHOLESTEROL INCREASED
     Dosage: 80MG/DAY
     Route: 048
     Dates: end: 20050131
  3. ACETAMINOPHEN [Concomitant]
     Dosage: 1 G, QID
     Route: 048
  4. ROSIGLITAZONE [Concomitant]
     Dosage: 4 MG, MANE
     Route: 048
  5. OMEPRAZOLE [Concomitant]
     Dosage: 20 MG, MANE
     Route: 048
  6. BENDROFLUAZIDE [Concomitant]
     Dosage: 2.5 MG, MANE
     Route: 048
  7. METFORMIN [Concomitant]
     Dosage: 500 MG, BID
     Dates: end: 20050202

REACTIONS (6)
  - ALANINE AMINOTRANSFERASE INCREASED [None]
  - ASPARTATE AMINOTRANSFERASE INCREASED [None]
  - BLOOD CREATINE PHOSPHOKINASE INCREASED [None]
  - BLOOD UREA INCREASED [None]
  - GAMMA-GLUTAMYLTRANSFERASE INCREASED [None]
  - LIVER FUNCTION TEST ABNORMAL [None]
